FAERS Safety Report 11760145 (Version 1)
Quarter: 2015Q4

REPORT INFORMATION
  Report Type: Spontaneous
  Country: US (occurrence: US)
  Receive Date: 20151120
  Receipt Date: 20151120
  Transmission Date: 20160304
  Serious: No
  Sender: FDA-Public Use
  Company Number: US-GALENA BIOPHARMA-1044479

PATIENT
  Sex: Male

DRUGS (1)
  1. ABSTRAL [Suspect]
     Active Substance: FENTANYL CITRATE
     Indication: BACK PAIN
     Route: 060
     Dates: start: 20140912

REACTIONS (3)
  - Product packaging issue [Unknown]
  - Sluggishness [Unknown]
  - Off label use [Unknown]
